FAERS Safety Report 8249332-X (Version None)
Quarter: 2012Q2

REPORT INFORMATION
  Report Type: 
  Country: None (occurrence: None)
  Receive Date: 20120402
  Receipt Date: 20120324
  Transmission Date: 20120825
  Serious: Yes (Hospitalization)
  Sender: FDA-Public Use
  Company Number: US-US-EMD SERONO, INC.-7095508

PATIENT
  Sex: Female

DRUGS (3)
  1. MULTI-VITAMIN [Concomitant]
     Indication: PRODUCT USED FOR UNKNOWN INDICATION
  2. BACLOFEN [Concomitant]
     Indication: PRODUCT USED FOR UNKNOWN INDICATION
  3. REBIF [Suspect]
     Indication: MULTIPLE SCLEROSIS
     Route: 058
     Dates: start: 20080505

REACTIONS (11)
  - ARTHRALGIA [None]
  - INJECTION SITE REACTION [None]
  - FALL [None]
  - HEADACHE [None]
  - PAIN IN EXTREMITY [None]
  - RED BLOOD CELL COUNT DECREASED [None]
  - SKELETAL INJURY [None]
  - PAIN [None]
  - MUSCLE SPASTICITY [None]
  - WOUND INFECTION [None]
  - INFLUENZA LIKE ILLNESS [None]
